FAERS Safety Report 8205586 (Version 2)
Quarter: 2014Q3

REPORT INFORMATION
  Report Type: Spontaneous
  Country: US (occurrence: US)
  Receive Date: 20111028
  Receipt Date: 20140925
  Transmission Date: 20150326
  Serious: No
  Sender: FDA-Public Use
  Company Number: US-GLAXOSMITHKLINE-A0865073A

PATIENT
  Age: 70 Year
  Sex: Female

DRUGS (4)
  1. QVAR [Concomitant]
     Active Substance: BECLOMETHASONE DIPROPIONATE
  2. ALBUTEROL. [Concomitant]
     Active Substance: ALBUTEROL
  3. SEREVENT [Suspect]
     Active Substance: SALMETEROL XINAFOATE
     Indication: ASTHMA
     Dosage: 1PUFF TWICE PER DAY
     Route: 055
     Dates: start: 20100210
  4. VENTOLIN [Suspect]
     Active Substance: ALBUTEROL SULFATE
     Indication: PRODUCT USED FOR UNKNOWN INDICATION
     Route: 065
     Dates: start: 20110525

REACTIONS (12)
  - Lethargy [Unknown]
  - Drug dose omission [Unknown]
  - Fatigue [Unknown]
  - Listless [Unknown]
  - Asthenia [Unknown]
  - Sluggishness [Unknown]
  - Somnolence [Unknown]
  - Hypersomnia [Unknown]
  - Laryngitis [Unknown]
  - Product quality issue [Unknown]
  - Sleep disorder [Unknown]
  - Drug ineffective [Unknown]

NARRATIVE: CASE EVENT DATE: 201005
